FAERS Safety Report 15220747 (Version 1)
Quarter: 2018Q3

REPORT INFORMATION
  Report Type: Spontaneous
  Country: US (occurrence: US)
  Receive Date: 20180731
  Receipt Date: 20180731
  Transmission Date: 20181010
  Serious: No
  Sender: FDA-Public Use
  Company Number: US-UNITED THERAPEUTICS-UNT-2018-011405

PATIENT
  Age: 65 Year
  Sex: Female
  Weight: 111.11 kg

DRUGS (1)
  1. REMODULIN [Suspect]
     Active Substance: TREPROSTINIL
     Indication: PULMONARY HYPERTENSION
     Dosage: 0.038 ?G/KG, CONTINUING
     Route: 041
     Dates: start: 20180427

REACTIONS (2)
  - Pruritus generalised [Unknown]
  - Rash generalised [Unknown]

NARRATIVE: CASE EVENT DATE: 20180721
